FAERS Safety Report 11297755 (Version 1)
Quarter: 2015Q3

REPORT INFORMATION
  Report Type: Spontaneous
  Country: US (occurrence: US)
  Receive Date: 20150722
  Receipt Date: 20150722
  Transmission Date: 20151125
  Serious: No
  Sender: FDA-Public Use
  Company Number: US-ELI_LILLY_AND_COMPANY-US200910006361

PATIENT
  Age: 72 Year
  Sex: Male

DRUGS (23)
  1. DIOVAN HCT [Concomitant]
     Active Substance: HYDROCHLOROTHIAZIDE\VALSARTAN
  2. ACTONEL [Concomitant]
     Active Substance: RISEDRONATE SODIUM
  3. PLAVIX [Concomitant]
     Active Substance: CLOPIDOGREL BISULFATE
  4. NOVOLOG [Concomitant]
     Active Substance: INSULIN ASPART
  5. VIAGRA [Concomitant]
     Active Substance: SILDENAFIL CITRATE
  6. LIPITOR [Concomitant]
     Active Substance: ATORVASTATIN CALCIUM
  7. VITAMIN E [Concomitant]
     Active Substance: .ALPHA.-TOCOPHEROL
  8. PRESERVISION LUTEIN EYE VITA.+MIN.SUP.SOFTG. [Concomitant]
  9. HUMATROPE [Suspect]
     Active Substance: SOMATROPIN
     Dosage: 0.4 MG, DAILY (1/D)
  10. ANDROGEL [Concomitant]
     Active Substance: TESTOSTERONE
  11. LOPRESSOR [Concomitant]
     Active Substance: METOPROLOL TARTRATE
  12. PRILOSEC [Concomitant]
     Active Substance: OMEPRAZOLE MAGNESIUM
  13. ZINC [Concomitant]
     Active Substance: ZINC\ZINC CHLORIDE
  14. GLUCOSAMINE [Concomitant]
     Active Substance: GLUCOSAMINE
  15. VICODIN [Concomitant]
     Active Substance: ACETAMINOPHEN\HYDROCODONE BITARTRATE
  16. SYNTHROID [Concomitant]
     Active Substance: LEVOTHYROXINE SODIUM
  17. COENZYME Q10 [Concomitant]
     Active Substance: UBIDECARENONE
  18. ECOTRIN [Concomitant]
     Active Substance: ASPIRIN
  19. LANTUS [Concomitant]
     Active Substance: INSULIN GLARGINE
  20. COLACE [Concomitant]
     Active Substance: DOCUSATE SODIUM
  21. CALCIUM D /00944201/ [Concomitant]
     Active Substance: CALCIUM CARBONATE\CHOLECALCIFEROL
  22. VITAMIN B12 [Concomitant]
     Active Substance: CYANOCOBALAMIN
  23. NASACORT AQ [Concomitant]
     Active Substance: TRIAMCINOLONE ACETONIDE

REACTIONS (7)
  - Hypoacusis [Not Recovered/Not Resolved]
  - Back disorder [Unknown]
  - Intervertebral disc protrusion [Unknown]
  - Cystitis [Recovered/Resolved]
  - Blood urine present [Recovered/Resolved]
  - Intentional device misuse [Unknown]
  - Wrong technique in product usage process [Unknown]

NARRATIVE: CASE EVENT DATE: 200910
